FAERS Safety Report 5750367-7 (Version None)
Quarter: 2008Q2

REPORT INFORMATION
  Report Type: 
  Country: None (occurrence: None)
  Receive Date: 20080528
  Receipt Date: 20080516
  Transmission Date: 20081010
  Serious: Yes (Hospitalization)
  Sender: FDA-Public Use
  Company Number: DK-TEVA-171760ISR

PATIENT
  Sex: Female

DRUGS (2)
  1. SIMVASTATIN [Suspect]
  2. PREDNISOLONE [Suspect]

REACTIONS (2)
  - GASTRIC ULCER [None]
  - POLYMYOSITIS [None]
